FAERS Safety Report 9379673 (Version 1)
Quarter: 2013Q3

REPORT INFORMATION
  Report Type: Spontaneous
  Country: LB (occurrence: LB)
  Receive Date: 20130702
  Receipt Date: 20130702
  Transmission Date: 20140515
  Serious: Yes (Other)
  Sender: FDA-Public Use
  Company Number: LB-009507513-1305LBN014072

PATIENT
  Age: 82 Year
  Sex: Male

DRUGS (5)
  1. JANUVIA [Suspect]
     Dosage: CONCENTRATION 100; ONCE DAILY
     Route: 048
  2. AMARYL [Concomitant]
     Dosage: STRENGTH:2
     Route: 048
  3. OMNIC [Concomitant]
     Route: 048
  4. SEROXAT [Concomitant]
     Route: 048
  5. CRESTOR [Concomitant]
     Route: 048

REACTIONS (1)
  - Pancreatic carcinoma [Unknown]
